FAERS Safety Report 6774605-7 (Version None)
Quarter: 2010Q2

REPORT INFORMATION
  Report Type: 
  Country: None (occurrence: None)
  Receive Date: 20100617
  Receipt Date: 20100615
  Transmission Date: 20101027
  Serious: Yes (Hospitalization)
  Sender: FDA-Public Use
  Company Number: DE-ROCHE-699680

PATIENT
  Sex: Female

DRUGS (17)
  1. TRASTUZUMAB [Suspect]
     Dosage: THERAPY INTERRUPTED.
     Route: 042
     Dates: start: 20100226, end: 20100512
  2. TRASTUZUMAB [Suspect]
     Route: 042
     Dates: start: 20100607
  3. PACLITAXEL [Suspect]
     Dosage: THERAPY INTERRUPTED.
     Route: 042
     Dates: start: 20100226, end: 20100512
  4. PACLITAXEL [Suspect]
     Route: 042
     Dates: start: 20100607
  5. OMEPRAZOLE [Concomitant]
  6. LISINOPRIL [Concomitant]
  7. METOPROLOL [Concomitant]
  8. LEVOTHYROXINE SODIUM [Concomitant]
  9. HYDROMORPHONE HYDROCHLORIDE [Concomitant]
  10. DULOXETINE [Concomitant]
  11. PREGABALIN [Concomitant]
  12. SPIRO COMP [Concomitant]
  13. STANGYL [Concomitant]
  14. DIPYRONE [Concomitant]
  15. TAMOXIFEN [Concomitant]
     Dates: start: 20040205
  16. DEXAMETHASONE [Concomitant]
  17. ZOPICLONE [Concomitant]

REACTIONS (4)
  - DEPRESSED MOOD [None]
  - LIPASE INCREASED [None]
  - PANCREATITIS [None]
  - PNEUMONITIS [None]
